FAERS Safety Report 15918242 (Version 1)
Quarter: 2019Q1

REPORT INFORMATION
  Report Type: Spontaneous
  Country: CH (occurrence: CH)
  Receive Date: 20190205
  Receipt Date: 20190205
  Transmission Date: 20190417
  Serious: Yes (Death)
  Sender: FDA-Public Use
  Company Number: CH-SA-2019SA025020

PATIENT
  Age: 77 Year
  Sex: Male
  Weight: 75 kg

DRUGS (8)
  1. STILNOX [Suspect]
     Active Substance: ZOLPIDEM TARTRATE
     Dosage: 10 MG, QD
     Route: 048
     Dates: start: 201802
  2. TAGRISSO [Suspect]
     Active Substance: OSIMERTINIB
     Indication: LUNG ADENOCARCINOMA STAGE IV
     Dosage: 80 MG, QD
     Route: 048
     Dates: start: 201802, end: 20181231
  3. IRBESARTAN. [Suspect]
     Active Substance: IRBESARTAN
     Indication: HYPERTENSION
     Dosage: 150 MG, QD
     Route: 048
     Dates: start: 201710, end: 20190101
  4. XARELTO [Suspect]
     Active Substance: RIVAROXABAN
     Indication: THROMBOSIS PROPHYLAXIS
     Dosage: 20 MG, QD
     Route: 048
     Dates: start: 201710, end: 20190101
  5. PARACETAMOL [Suspect]
     Active Substance: ACETAMINOPHEN
     Dosage: DAFALGAN 1G MAX 4 TABL./TAG (IN DER REGEL 2-3 EINGENOMMEN) MIND. SEIT 10/2017
     Route: 048
     Dates: start: 201710, end: 20190101
  6. MAGNESIUM BIOMED [MAGNESIUM ASPARTATE] [Concomitant]
     Dosage: 1 DF, QD
     Route: 048
     Dates: end: 20190101
  7. MORPHINE [Concomitant]
     Active Substance: MORPHINE
     Indication: DYSPNOEA AT REST
     Dosage: 1 DF, QD
     Route: 048
     Dates: start: 20181129
  8. AMLODIPINE [Suspect]
     Active Substance: AMLODIPINE BESYLATE
     Indication: HYPERTENSION
     Dosage: 5 MG, QD
     Route: 048
     Dates: start: 201710, end: 20190101

REACTIONS (3)
  - Jaundice cholestatic [Fatal]
  - Dose calculation error [Unknown]
  - Hepatocellular injury [Fatal]

NARRATIVE: CASE EVENT DATE: 201710
